FAERS Safety Report 16961428 (Version 2)
Quarter: 2020Q1

REPORT INFORMATION
  Report Type: Spontaneous
  Country: CH (occurrence: CH)
  Receive Date: 20191025
  Receipt Date: 20200204
  Transmission Date: 20200409
  Serious: Yes (Other)
  Sender: FDA-Public Use
  Company Number: CH-PFIZER INC-2019459814

PATIENT
  Age: 10 Year
  Sex: Male

DRUGS (6)
  1. ZOLOFT [Suspect]
     Active Substance: SERTRALINE HYDROCHLORIDE
     Dosage: UNK
     Dates: end: 20190917
  2. CONCERTA [Concomitant]
     Active Substance: METHYLPHENIDATE HYDROCHLORIDE
     Dosage: UNK
     Dates: end: 2018
  3. ABILIFY [Suspect]
     Active Substance: ARIPIPRAZOLE
     Dosage: 7.5 MG, DAILY
     Route: 048
     Dates: start: 201910
  4. ZOLOFT [Suspect]
     Active Substance: SERTRALINE HYDROCHLORIDE
     Dosage: 75 MG, 1X/DAY
     Dates: start: 20190918
  5. RISPERDAL [Suspect]
     Active Substance: RISPERIDONE
     Dosage: UNK
     Dates: start: 201801, end: 20190823
  6. RISPERDAL [Suspect]
     Active Substance: RISPERIDONE
     Dosage: 0.75 MG, 2X/DAY (MORNING AND EVENING)
     Dates: start: 20190824, end: 201910

REACTIONS (4)
  - Hyperprolactinaemia [Not Recovered/Not Resolved]
  - Weight increased [Recovered/Resolved with Sequelae]
  - Insulin resistance [Not Recovered/Not Resolved]
  - Weight increased [Not Recovered/Not Resolved]

NARRATIVE: CASE EVENT DATE: 2019
